FAERS Safety Report 16960744 (Version 1)
Quarter: 2019Q4

REPORT INFORMATION
  Report Type: Spontaneous
  Country: CA (occurrence: CA)
  Receive Date: 20191025
  Receipt Date: 20191025
  Transmission Date: 20200122
  Serious: Yes (Death, Other)
  Sender: FDA-Public Use
  Company Number: CA-TEVA-2019-CA-1126420

PATIENT
  Age: 61 Year
  Sex: Male

DRUGS (12)
  1. FLUCONAZOLE. [Suspect]
     Active Substance: FLUCONAZOLE
     Indication: PSEUDOMONAS INFECTION
  2. PIPERACILLIN SODIUM/TAZOBACTAM SODIUM [Suspect]
     Active Substance: PIPERACILLIN SODIUM\TAZOBACTAM SODIUM
     Indication: ABDOMINAL INFECTION
  3. COLISTIN SULFATE [Suspect]
     Active Substance: COLISTIN SULFATE
     Indication: ABDOMINAL INFECTION
  4. FLUCONAZOLE. [Suspect]
     Active Substance: FLUCONAZOLE
     Indication: STAPHYLOCOCCAL INFECTION
     Route: 065
  5. COLISTIN SULFATE [Suspect]
     Active Substance: COLISTIN SULFATE
     Indication: STAPHYLOCOCCAL INFECTION
     Route: 065
  6. CUBICIN [Suspect]
     Active Substance: DAPTOMYCIN
     Indication: ABDOMINAL INFECTION
  7. PIPERACILLIN SODIUM/TAZOBACTAM SODIUM [Suspect]
     Active Substance: PIPERACILLIN SODIUM\TAZOBACTAM SODIUM
     Indication: STAPHYLOCOCCAL INFECTION
     Route: 065
  8. CUBICIN [Suspect]
     Active Substance: DAPTOMYCIN
     Indication: PSEUDOMONAS INFECTION
  9. PIPERACILLIN SODIUM/TAZOBACTAM SODIUM [Suspect]
     Active Substance: PIPERACILLIN SODIUM\TAZOBACTAM SODIUM
     Indication: PSEUDOMONAS INFECTION
  10. CUBICIN [Suspect]
     Active Substance: DAPTOMYCIN
     Indication: STAPHYLOCOCCAL INFECTION
     Dosage: POWDER FOR SOLUTION INTRAVENOUS
     Route: 065
  11. FLUCONAZOLE. [Suspect]
     Active Substance: FLUCONAZOLE
     Indication: ABDOMINAL INFECTION
  12. COLISTIN SULFATE [Suspect]
     Active Substance: COLISTIN SULFATE
     Indication: PSEUDOMONAS INFECTION

REACTIONS (3)
  - Multiple-drug resistance [Fatal]
  - Renal failure [Fatal]
  - Infection [Fatal]
